FAERS Safety Report 4840206-0 (Version None)
Quarter: 2005Q4

REPORT INFORMATION
  Report Type: 
  Country: None (occurrence: None)
  Receive Date: 20051125
  Receipt Date: 20051114
  Transmission Date: 20060501
  Serious: Yes (Hospitalization)
  Sender: FDA-Public Use
  Company Number: 230283M05USA

PATIENT
  Sex: Female

DRUGS (1)
  1. REBIF [Suspect]
     Indication: MULTIPLE SCLEROSIS
     Dosage: 44 MCG
     Dates: start: 20030101, end: 20050101

REACTIONS (9)
  - CONDITION AGGRAVATED [None]
  - INJECTION SITE DISCOLOURATION [None]
  - INJECTION SITE ERYTHEMA [None]
  - INJECTION SITE REACTION [None]
  - MOVEMENT DISORDER [None]
  - MULTIPLE SCLEROSIS [None]
  - PYREXIA [None]
  - SKIN LESION [None]
  - VOMITING [None]
